FAERS Safety Report 7781675-6 (Version None)
Quarter: 2011Q3

REPORT INFORMATION
  Report Type: 
  Country: None (occurrence: None)
  Receive Date: 20110927
  Receipt Date: 20110922
  Transmission Date: 20111222
  Serious: Yes (Other)
  Sender: FDA-Public Use
  Company Number: US-AMGEN-USASP2011040855

PATIENT
  Age: 98 Year
  Sex: Male

DRUGS (3)
  1. FINASTERIDE [Concomitant]
     Indication: PROSTATOMEGALY
  2. RITUXIMAB [Concomitant]
     Indication: IDIOPATHIC THROMBOCYTOPENIC PURPURA
  3. NPLATE [Suspect]
     Indication: IDIOPATHIC THROMBOCYTOPENIC PURPURA
     Dates: start: 20110307

REACTIONS (6)
  - SURGERY [None]
  - BACTERIAL SEPSIS [None]
  - PROCEDURAL PAIN [None]
  - POSTOPERATIVE WOUND INFECTION [None]
  - POST PROCEDURAL CONSTIPATION [None]
  - URINARY INCONTINENCE [None]
